FAERS Safety Report 10738609 (Version 3)
Quarter: 2017Q4

REPORT INFORMATION
  Report Type: Report from Study
  Country: US (occurrence: US)
  Receive Date: 20150126
  Receipt Date: 20171129
  Transmission Date: 20180320
  Serious: Yes (Hospitalization)
  Sender: FDA-Public Use
  Company Number: US-VERTEX PHARMACEUTICALS-2015-000220

PATIENT
  Age: 44 Year
  Sex: Female

DRUGS (21)
  1. CREON [Concomitant]
     Active Substance: PANCRELIPASE AMYLASE\PANCRELIPASE LIPASE\PANCRELIPASE PROTEASE
  2. ATIVAN [Concomitant]
     Active Substance: LORAZEPAM
  3. TELITHROMYCIN [Concomitant]
     Active Substance: TELITHROMYCIN
  4. VITAMIN D [Concomitant]
     Active Substance: CHOLECALCIFEROL
  5. ZYRTEC [Concomitant]
     Active Substance: CETIRIZINE HYDROCHLORIDE
  6. CYANOCOBALAMIN. [Concomitant]
     Active Substance: CYANOCOBALAMIN
  7. LUNESTA [Concomitant]
     Active Substance: ESZOPICLONE
  8. BACTRIM DS [Concomitant]
     Active Substance: SULFAMETHOXAZOLE\TRIMETHOPRIM
  9. KALYDECO [Suspect]
     Active Substance: IVACAFTOR
     Indication: CYSTIC FIBROSIS
     Dosage: 150 MG, QD
     Route: 048
     Dates: start: 20140426
  10. VITAMIN C [Concomitant]
     Active Substance: ASCORBIC ACID
  11. COLACE [Concomitant]
     Active Substance: DOCUSATE SODIUM
  12. NEXIUM [Concomitant]
     Active Substance: ESOMEPRAZOLE MAGNESIUM
  13. KEPPRA [Concomitant]
     Active Substance: LEVETIRACETAM
  14. LISINOPRIL. [Concomitant]
     Active Substance: LISINOPRIL
  15. MAGNESIUM [Concomitant]
     Active Substance: MAGNESIUM
  16. REGLAN [Concomitant]
     Active Substance: METOCLOPRAMIDE HYDROCHLORIDE
  17. PROGRAF [Concomitant]
     Active Substance: TACROLIMUS\TACROLIMUS ANHYDROUS
  18. MVI [Concomitant]
     Active Substance: VITAMINS
  19. PREDNISONE. [Concomitant]
     Active Substance: PREDNISONE
  20. CALCIUM [Concomitant]
     Active Substance: CALCIUM
  21. FLEXERIL [Concomitant]
     Active Substance: CYCLOBENZAPRINE HYDROCHLORIDE

REACTIONS (2)
  - Off label use [Unknown]
  - Food poisoning [Recovered/Resolved]

NARRATIVE: CASE EVENT DATE: 201407
